FAERS Safety Report 11931761 (Version 2)
Quarter: 2016Q1

REPORT INFORMATION
  Report Type: Report from Study
  Country: US (occurrence: US)
  Receive Date: 20160120
  Receipt Date: 20160222
  Transmission Date: 20160526
  Serious: Yes (Life-Threatening, Hospitalization)
  Sender: FDA-Public Use
  Company Number: US-THERATECHNOLOGIES, INC.-TH-2016-00001

PATIENT
  Age: 55 Year
  Sex: Male
  Weight: 83.9 kg

DRUGS (3)
  1. EGRIFTA [Suspect]
     Active Substance: TESAMORELIN
     Indication: LIPODYSTROPHY ACQUIRED
     Dosage: 1 MILLIGRAM
     Route: 058
     Dates: start: 20150130
  2. METOPROLOL. [Concomitant]
     Active Substance: METOPROLOL
     Indication: HYPERTENSION
     Dosage: 100 MILLIGRAM
     Route: 048
     Dates: start: 20110722
  3. EGRIFTA [Suspect]
     Active Substance: TESAMORELIN
     Dosage: 2 MILLIGRAM
     Route: 058
     Dates: start: 20130218, end: 20140308

REACTIONS (1)
  - Myocardial infarction [Recovered/Resolved]

NARRATIVE: CASE EVENT DATE: 20151021
